FAERS Safety Report 8875032 (Version 1)
Quarter: 2012Q4

REPORT INFORMATION
  Report Type: 
  Country: US (occurrence: US)
  Receive Date: 20121029
  Receipt Date: 20121029
  Transmission Date: 20130627
  Serious: No
  Sender: FDA-Public Use
  Company Number: US-PFIZER INC-2012267133

PATIENT
  Sex: Female

DRUGS (4)
  1. ALPRAZOLAM [Suspect]
     Indication: ANXIETY
     Dosage: UNK
  2. ALPRAZOLAM [Suspect]
     Indication: PANIC DISORDER
  3. CENTRUM SILVER [Concomitant]
     Dosage: UNK
  4. SULFAMETHOXAZOLE W/TRIMETHOPRIM [Concomitant]
     Indication: URINARY INCONTINENCE
     Dosage: 1 DF, 2x/day

REACTIONS (2)
  - Drug ineffective [Unknown]
  - Nightmare [Recovered/Resolved]
